FAERS Safety Report 8958668 (Version 1)
Quarter: 2012Q4

REPORT INFORMATION
  Report Type: Spontaneous
  Country: US (occurrence: None)
  Receive Date: 20121206
  Receipt Date: 20121206
  Transmission Date: 20130627
  Serious: No
  Sender: FDA-Public Use
  Company Number: None

PATIENT
  Age: 66 Year
  Sex: Female
  Weight: 61 kg

DRUGS (1)
  1. LEVOFLOXACIN [Suspect]
     Dosage: 500mg  x1  IV
     Route: 042

REACTIONS (2)
  - Skin induration [None]
  - Local swelling [None]
